FAERS Safety Report 9195392 (Version 1)
Quarter: 2013Q1

REPORT INFORMATION
  Report Type: Spontaneous
  Country: US (occurrence: US)
  Receive Date: 20130328
  Receipt Date: 20130328
  Transmission Date: 20140127
  Serious: No
  Sender: FDA-Public Use
  Company Number: US-ALLERGAN-1216871US

PATIENT
  Age: 86 Year
  Sex: Female

DRUGS (6)
  1. LUMIGAN? 0.01% [Suspect]
     Indication: INTRAOCULAR PRESSURE INCREASED
     Dosage: 2 GTT, QHS
     Route: 047
     Dates: start: 201209, end: 20121019
  2. LUMIGAN? 0.01% [Suspect]
     Dosage: 2 GTT, QHS
     Route: 047
     Dates: start: 201208
  3. GENTEAL                            /00445101/ [Concomitant]
     Indication: DRY EYE
     Dosage: 2 GTT, QID
     Route: 047
     Dates: start: 2011
  4. GENTEAL GEL [Concomitant]
     Indication: DRY EYE
     Dosage: UNK, QHS
     Route: 047
     Dates: start: 2011
  5. LEVOXYL [Concomitant]
     Indication: HYPOTHYROIDISM
     Dosage: UNK UNK, QD
     Route: 048
  6. AMLODIPIN                          /00972401/ [Concomitant]
     Indication: HYPERTENSION
     Dosage: UNK UNK, QD
     Route: 048

REACTIONS (1)
  - Visual impairment [Recovered/Resolved]
